FAERS Safety Report 10029671 (Version 1)
Quarter: 2014Q1

REPORT INFORMATION
  Report Type: Spontaneous
  Country: US (occurrence: None)
  Receive Date: 20140321
  Receipt Date: 20140321
  Transmission Date: 20141002
  Serious: Yes (Hospitalization)
  Sender: FDA-Public Use
  Company Number: None

PATIENT
  Age: 50 Year
  Sex: Female
  Weight: 162.39 kg

DRUGS (1)
  1. SULFAMETHOXAZOLE\TRIMETHOPRIM [Suspect]
     Indication: SINUSITIS
     Dosage: 1 TAB TWICE DAILY TAKEN BY MOUTH
     Route: 048
     Dates: start: 19010320, end: 20140126

REACTIONS (2)
  - Abdominal pain [None]
  - Rectal haemorrhage [None]
